FAERS Safety Report 8514740-6 (Version None)
Quarter: 2012Q3

REPORT INFORMATION
  Report Type: 
  Country: None (occurrence: None)
  Receive Date: 20120717
  Receipt Date: 20120711
  Transmission Date: 20120928
  Serious: Yes (Hospitalization, Other)
  Sender: FDA-Public Use
  Company Number: US-BAYER-2012-041790

PATIENT
  Age: 17 Year
  Sex: Female

DRUGS (6)
  1. IBUPROFEN [Concomitant]
  2. DROSPIRENONE AND ETHINYL ESTRADIOL [Suspect]
  3. FLEXERIL [Concomitant]
  4. NORCO [Concomitant]
  5. SKELAXIN [Concomitant]
  6. OMEPRAZOLE [Concomitant]

REACTIONS (2)
  - PULMONARY EMBOLISM [None]
  - DEEP VEIN THROMBOSIS [None]
